FAERS Safety Report 4636630-1 (Version None)
Quarter: 2005Q2

REPORT INFORMATION
  Report Type: 
  Country: None (occurrence: None)
  Receive Date: 20050414
  Receipt Date: 20050329
  Transmission Date: 20051028
  Serious: Yes (Hospitalization)
  Sender: FDA-Public Use
  Company Number: JP-2005-002674

PATIENT
  Age: 30 Year
  Sex: Female
  Weight: 55 kg

DRUGS (1)
  1. BETAFERON (INTERFERON BETA - 1B) INJECTION, 960MIU [Suspect]
     Indication: MULTIPLE SCLEROSIS
     Dosage: 800 MIU
     Dates: start: 20050101

REACTIONS (1)
  - HEPATITIS FULMINANT [None]
